FAERS Safety Report 16771164 (Version 1)
Quarter: 2019Q3

REPORT INFORMATION
  Report Type: Spontaneous
  Country: FR (occurrence: FR)
  Receive Date: 20190904
  Receipt Date: 20190904
  Transmission Date: 20191005
  Serious: Yes (Other)
  Sender: FDA-Public Use
  Company Number: FR-TEVA-2019-FR-1100419

PATIENT
  Age: 76 Year
  Sex: Female
  Weight: 54.8 kg

DRUGS (13)
  1. CLOPIDOGREL MYLAN 75 MG, COMPRIM? PELLICUL? [Suspect]
     Active Substance: CLOPIDOGREL HYDROCHLORIDE
     Indication: CEREBROVASCULAR ACCIDENT
     Dosage: 0-1-0
     Route: 048
     Dates: start: 20190406
  2. DEPAKINE [Suspect]
     Active Substance: VALPROATE SODIUM
     Indication: CEREBROVASCULAR ACCIDENT
     Dosage: 1000 MG, 1-0-1
     Route: 048
     Dates: start: 20190514, end: 20190531
  3. UVEDOSE 100 000 UI, SOLUTION BUVABLE EN AMPOULE [Suspect]
     Active Substance: CHOLECALCIFEROL
     Indication: VITAMIN D DEFICIENCY
     Dosage: 100000 IU, 1 BULB EVERY 15 DAYS
     Route: 048
     Dates: start: 20190424, end: 20190514
  4. DIFFU K [Concomitant]
     Active Substance: POTASSIUM CHLORIDE
     Indication: HYPOKALAEMIA
     Dosage: 1800 MG, 1-1-1
     Route: 048
     Dates: end: 20190530
  5. DEROXAT 20 MG, COMPRIM? PELLICUL? S?CABLE [Concomitant]
     Active Substance: PAROXETINE HYDROCHLORIDE
     Indication: DEPRESSION
     Dosage: 20 MG, 1-0-0
     Route: 048
  6. BISOCE 2,5 MG, COMPRIM? PELLICUL? S?CABLE [Concomitant]
     Active Substance: BISOPROLOL FUMARATE
     Indication: CARDIOVASCULAR EVENT PROPHYLAXIS
     Dosage: 2.5 MG, 1-0-1
     Route: 048
  7. METFORMINE ARROW 500 MG, COMPRIM? PELLICUL? [Suspect]
     Active Substance: METFORMIN HYDROCHLORIDE
     Indication: DIABETES MELLITUS
     Dosage: 1-0-1
     Route: 048
     Dates: start: 20190402
  8. ATORVASTATINE ARROW 40 MG, COMPRIM? PELLICUL? [Suspect]
     Active Substance: ATORVASTATIN
     Indication: DYSLIPIDAEMIA
     Dosage: 80MG,0-0-2
     Route: 048
     Dates: start: 20190405, end: 20190514
  9. CORTANCYL 20 MG, COMPRIM? S?CABLE [Concomitant]
     Indication: CENTRAL NERVOUS SYSTEM VASCULITIS
     Dosage: 20 MG, 1-0-0
     Route: 048
     Dates: end: 20190524
  10. LAMICTAL [Suspect]
     Active Substance: LAMOTRIGINE
     Indication: CEREBROVASCULAR ACCIDENT
     Dosage: 25MG, 1-0-0
     Route: 048
     Dates: start: 20190405, end: 20190514
  11. KEPPRA [Suspect]
     Active Substance: LEVETIRACETAM
     Indication: CEREBROVASCULAR ACCIDENT
     Dosage: 1000 MG, 1-0-1
     Route: 048
     Dates: start: 20190403
  12. ELIQUIS [Suspect]
     Active Substance: APIXABAN
     Indication: ATRIAL FIBRILLATION
     Dosage: 10MG, 1-0-1
     Route: 048
     Dates: start: 20190429
  13. FUNGIZONE [Suspect]
     Active Substance: AMPHOTERICIN B
     Indication: ORAL FUNGAL INFECTION
     Dosage: 3 DOSAGE FORMS, 1-1-1 (1 TEASPOON)
     Route: 048
     Dates: start: 20190419, end: 20190514

REACTIONS (2)
  - Thrombocytopenia [Recovered/Resolved]
  - Condition aggravated [Recovered/Resolved]

NARRATIVE: CASE EVENT DATE: 20190419
